FAERS Safety Report 6505111-2 (Version None)
Quarter: 2009Q4

REPORT INFORMATION
  Report Type: 
  Country: None (occurrence: None)
  Receive Date: 20091218
  Receipt Date: 20091208
  Transmission Date: 20100525
  Serious: Yes (Disabling, Other)
  Sender: FDA-Public Use
  Company Number: PHEH2009US15103

PATIENT
  Sex: Female

DRUGS (21)
  1. RECLAST [Suspect]
     Indication: OSTEOPOROSIS
     Dosage: 5 MG (ONLY ONE DOSE GIVEN)
     Dates: start: 20090408
  2. ALBUTEROL [Concomitant]
     Dosage: 2 PUFFS EVERY 4 HOURS AS NEEDED
  3. ALBUTEROL SULFATE AUTOHALER [Concomitant]
     Dosage: 2.5 MG/0.5 ML NEB SOLUTION (Q6 HOURS) PRN
  4. AMBIEN [Concomitant]
     Dosage: 1 TABLET AT BED TIME
     Route: 048
  5. ASPIRIN [Concomitant]
     Dosage: 1 TABLET DAILY
     Route: 048
  6. CALCIUM CARB-VIT D3-MINERALS [Concomitant]
  7. CLONIDINE [Concomitant]
     Dosage: 1 DF, BID
     Route: 048
  8. IMDUR [Concomitant]
     Dosage: 1 DF, QD
     Route: 048
  9. LISINOPRIL [Concomitant]
     Dosage: 1 DF, QD
     Route: 048
  10. MULTI-VITAMINS [Concomitant]
     Dosage: 1 TABLET DAILY
     Route: 048
  11. SPIRIVA [Concomitant]
     Dosage: 1 UNIT DAILY
  12. SINGULAIR [Concomitant]
     Indication: RHINITIS ALLERGIC
     Dosage: 10 MG, QHS
     Route: 048
  13. SINGULAIR [Concomitant]
     Indication: ASTHMA
  14. SYMBICORT [Concomitant]
     Indication: ASTHMA
     Dosage: 2 PUFFS BY MOUTH 2 TIMES A DAY
  15. SYMBICORT [Concomitant]
     Indication: CHRONIC OBSTRUCTIVE PULMONARY DISEASE
  16. BUMETANIDE [Concomitant]
     Indication: CARDIAC FAILURE CONGESTIVE
     Dosage: 2 MG, BID
     Route: 048
  17. EFFEXOR XR [Concomitant]
     Indication: DEPRESSION
     Dosage: 75 MG, QD
     Route: 048
  18. NEXIUM [Concomitant]
     Indication: GASTROOESOPHAGEAL REFLUX DISEASE
     Dosage: 40 MG, QD
     Route: 048
  19. THYROID TAB [Concomitant]
     Indication: HYPOTHYROIDISM
     Dosage: 90 MG, QD
     Route: 048
  20. SYNTHROID [Concomitant]
     Indication: HYPOTHYROIDISM
     Dosage: 88 UG, QD
     Route: 048
  21. DETROL [Concomitant]
     Indication: URGE INCONTINENCE
     Dosage: 4 MG, QD
     Route: 048

REACTIONS (10)
  - ABDOMINAL PAIN UPPER [None]
  - ADRENAL INSUFFICIENCY [None]
  - CARDIAC FAILURE CONGESTIVE [None]
  - CONSTIPATION [None]
  - DYSPNOEA [None]
  - DYSPNOEA EXERTIONAL [None]
  - FATIGUE [None]
  - INTERVERTEBRAL DISC PROTRUSION [None]
  - MALAISE [None]
  - MYALGIA [None]
